FAERS Safety Report 5659873-7 (Version None)
Quarter: 2008Q1

REPORT INFORMATION
  Report Type: 
  Country: None (occurrence: None)
  Receive Date: 20080311
  Receipt Date: 20070731
  Transmission Date: 20080703
  Serious: No
  Sender: FDA-Public Use
  Company Number: US-BAYER-200712457BCC

PATIENT
  Age: 31 Year
  Sex: Female
  Weight: 75 kg

DRUGS (3)
  1. ALEVE [Suspect]
     Indication: BACK PAIN
     Dosage: TOTAL DAILY DOSE: 220 MG  UNIT DOSE: 220 MG
     Route: 048
     Dates: start: 20070729, end: 20070729
  2. SUDAFED 12 HOUR [Concomitant]
  3. SERTRALINE [Concomitant]

REACTIONS (3)
  - EYE SWELLING [None]
  - FATIGUE [None]
  - LIP SWELLING [None]
